FAERS Safety Report 8446598-8 (Version None)
Quarter: 2012Q2

REPORT INFORMATION
  Report Type: 
  Country: None (occurrence: None)
  Receive Date: 20120619
  Receipt Date: 20120611
  Transmission Date: 20120825
  Serious: Yes (Hospitalization, Other)
  Sender: FDA-Public Use
  Company Number: US-AMGEN-USASP2012036919

PATIENT
  Age: 77 Year
  Sex: Female

DRUGS (1)
  1. ENBREL [Suspect]
     Indication: PRODUCT USED FOR UNKNOWN INDICATION
     Dosage: 50 MG, QWK
     Dates: start: 20070301

REACTIONS (6)
  - THROMBOSIS [None]
  - MYOCARDIAL INFARCTION [None]
  - FALL [None]
  - HAEMORRHAGE [None]
  - RENAL ARTERY STENOSIS [None]
  - HIP FRACTURE [None]
